FAERS Safety Report 10355426 (Version 2)
Quarter: 2014Q3

REPORT INFORMATION
  Report Type: Spontaneous
  Country: US (occurrence: US)
  Receive Date: 20140731
  Receipt Date: 20140804
  Transmission Date: 20150326
  Serious: Yes (Death, Hospitalization)
  Sender: FDA-Public Use
  Company Number: US-009507513-1407USA013054

PATIENT
  Age: 53 Year
  Sex: Female

DRUGS (1)
  1. INTRON A [Suspect]
     Active Substance: INTERFERON ALFA-2B
     Indication: BREAST CANCER
     Dosage: DOSE UNKNOWN, EVERY MONDAY, WEDNESDAY, AND FRIDAY
     Route: 065
     Dates: end: 201406

REACTIONS (4)
  - Abasia [Unknown]
  - Pain [Unknown]
  - Death [Fatal]
  - Circumstance or information capable of leading to medication error [Unknown]

NARRATIVE: CASE EVENT DATE: 20140606
